FAERS Safety Report 12132210 (Version 1)
Quarter: 2016Q1

REPORT INFORMATION
  Report Type: Spontaneous
  Country: AU (occurrence: AU)
  Receive Date: 20160301
  Receipt Date: 20160301
  Transmission Date: 20160526
  Serious: Yes (Hospitalization, Other)
  Sender: FDA-Public Use
  Company Number: AU-MYLANLABS-2016M1008961

PATIENT

DRUGS (27)
  1. CETIRIZINE MYLAN PHARMA 10 MG, COMPRIM? PELLICUL? S?CABLE [Suspect]
     Active Substance: CETIRIZINE HYDROCHLORIDE
     Dosage: 20 MG, QD
  2. RANITIDINE MYLAN 150 MG [Suspect]
     Active Substance: RANITIDINE HYDROCHLORIDE
     Indication: PRODUCT USED FOR UNKNOWN INDICATION
     Dosage: 150 MG, BID
     Dates: start: 2015
  3. RANITIDINE MYLAN 150 MG [Suspect]
     Active Substance: RANITIDINE HYDROCHLORIDE
     Dosage: 150 MG, BID
  4. NEORAL [Suspect]
     Active Substance: CYCLOSPORINE
     Indication: URTICARIA CHRONIC
     Dosage: 100 MG, QD
     Dates: start: 2015
  5. FEXOFENADINE [Suspect]
     Active Substance: FEXOFENADINE\FEXOFENADINE HYDROCHLORIDE
     Indication: URTICARIA
     Dosage: 0.5 DF, BID
     Dates: start: 2015
  6. MONTELUKAST [Suspect]
     Active Substance: MONTELUKAST SODIUM
     Indication: URTICARIA
     Dosage: 10 MG, QD
     Dates: start: 2015
  7. NEORAL [Suspect]
     Active Substance: CYCLOSPORINE
     Dosage: 50 MG, BID
  8. CETIRIZINE MYLAN PHARMA 10 MG, COMPRIM? PELLICUL? S?CABLE [Suspect]
     Active Substance: CETIRIZINE HYDROCHLORIDE
     Dosage: 10 MG, BID
  9. FEXOFENADINE [Suspect]
     Active Substance: FEXOFENADINE\FEXOFENADINE HYDROCHLORIDE
     Dosage: 360 MG, BID
  10. AZATHIOPRINE MYLAN [Suspect]
     Active Substance: AZATHIOPRINE
     Dosage: 10 MG, QD
  11. PROMETHAZINE [Suspect]
     Active Substance: PROMETHAZINE\PROMETHAZINE HYDROCHLORIDE
     Indication: URTICARIA
     Dosage: 20 MG, PM
     Dates: start: 2015
  12. AZATHIOPRINE MYLAN [Suspect]
     Active Substance: AZATHIOPRINE
     Indication: URTICARIA
     Dosage: 100 MG, QD
     Dates: start: 201506
  13. PHENERGAN [Suspect]
     Active Substance: PROMETHAZINE HYDROCHLORIDE
     Indication: URTICARIA
     Dosage: UNK, PM
     Dates: start: 2015
  14. PREDNISONE. [Suspect]
     Active Substance: PREDNISONE
     Indication: URTICARIA CHRONIC
     Dosage: 50 MG, QD
     Dates: start: 2015
  15. FEXOFENADINE [Suspect]
     Active Substance: FEXOFENADINE\FEXOFENADINE HYDROCHLORIDE
     Dosage: 180 MG, BID
  16. PREDNISONE. [Suspect]
     Active Substance: PREDNISONE
     Dosage: 50 MG, QD
  17. NEORAL [Suspect]
     Active Substance: CYCLOSPORINE
     Indication: PRODUCT USE ISSUE
     Dosage: 150 MG, QD
  18. CETIRIZINE MYLAN PHARMA 10 MG, COMPRIM? PELLICUL? S?CABLE [Suspect]
     Active Substance: CETIRIZINE HYDROCHLORIDE
     Indication: URTICARIA
     Dosage: 10 MG, QD
     Dates: start: 2015
  19. CETIRIZINE MYLAN PHARMA 10 MG, COMPRIM? PELLICUL? S?CABLE [Suspect]
     Active Substance: CETIRIZINE HYDROCHLORIDE
     Dosage: 20 MG, QD
  20. CETIRIZINE MYLAN PHARMA 10 MG, COMPRIM? PELLICUL? S?CABLE [Suspect]
     Active Substance: CETIRIZINE HYDROCHLORIDE
     Dosage: 10 MG, BID
  21. CETIRIZINE MYLAN PHARMA 10 MG, COMPRIM? PELLICUL? S?CABLE [Suspect]
     Active Substance: CETIRIZINE HYDROCHLORIDE
     Dosage: 20 MG, BID
  22. ZYRTEC [Suspect]
     Active Substance: CETIRIZINE HYDROCHLORIDE
     Indication: URTICARIA
     Dosage: 20 MG, BID
     Route: 005
     Dates: start: 2015
  23. CETIRIZINE MYLAN PHARMA 10 MG, COMPRIM? PELLICUL? S?CABLE [Suspect]
     Active Substance: CETIRIZINE HYDROCHLORIDE
     Dosage: 40 MG, QD
  24. FEXOFENADINE [Suspect]
     Active Substance: FEXOFENADINE\FEXOFENADINE HYDROCHLORIDE
     Dosage: 2 DF, BID
  25. CYCLOSPORIN [Suspect]
     Active Substance: CYCLOSPORINE
     Indication: URTICARIA
     Dosage: 100 MG, QD
     Dates: start: 201507, end: 20150730
  26. CYCLOSPORIN [Suspect]
     Active Substance: CYCLOSPORINE
     Dosage: 75 MG, BID
  27. XOLAIR [Suspect]
     Active Substance: OMALIZUMAB
     Indication: URTICARIA CHRONIC
     Dosage: 300 MG, MONTHLY
     Route: 058
     Dates: start: 20151019

REACTIONS (11)
  - Bronchitis [Unknown]
  - Sedation [Unknown]
  - Viral upper respiratory tract infection [Unknown]
  - Lower respiratory tract infection bacterial [Unknown]
  - Drug ineffective [Unknown]
  - Urticaria [Not Recovered/Not Resolved]
  - Nausea [Unknown]
  - Sleep disorder [Unknown]
  - Discomfort [Unknown]
  - Pyrexia [Unknown]
  - Insomnia [Unknown]

NARRATIVE: CASE EVENT DATE: 2015
